FAERS Safety Report 12728559 (Version 1)
Quarter: 2016Q3

REPORT INFORMATION
  Report Type: Spontaneous
  Country: US (occurrence: US)
  Receive Date: 20160906
  Receipt Date: 20160906
  Transmission Date: 20161109
  Serious: Yes (Life-Threatening, Hospitalization, Disabling)
  Sender: FDA-Public Use
  Company Number: None

PATIENT
  Age: 83 Year
  Sex: Male
  Weight: 78.93 kg

DRUGS (11)
  1. DOXYCYCLINE HYCLATE. [Suspect]
     Active Substance: DOXYCYCLINE HYCLATE
     Indication: POST PROCEDURAL INFECTION
     Dosage: 1 CAPSULE TWICE DAILY WITH FOOD
     Route: 048
     Dates: start: 20160713, end: 20160817
  2. ADULT VITAMIN [Concomitant]
  3. FUROSEMIDE. [Concomitant]
     Active Substance: FUROSEMIDE
  4. ELIQUIS [Concomitant]
     Active Substance: APIXABAN
  5. DOXYCYCLINE HYCLATE. [Suspect]
     Active Substance: DOXYCYCLINE HYCLATE
     Indication: HIP ARTHROPLASTY
     Dosage: 1 CAPSULE TWICE DAILY WITH FOOD
     Route: 048
     Dates: start: 20160713, end: 20160817
  6. LATANOPROST. [Concomitant]
     Active Substance: LATANOPROST
  7. TAMSULOSIN [Concomitant]
     Active Substance: TAMSULOSIN
  8. DILTIAZEM. [Concomitant]
     Active Substance: DILTIAZEM
  9. COENZYME Q10 [Concomitant]
     Active Substance: UBIDECARENONE
  10. LISINOPRIL. [Concomitant]
     Active Substance: LISINOPRIL
  11. DIGOXIN. [Concomitant]
     Active Substance: DIGOXIN

REACTIONS (2)
  - Pericardial effusion [None]
  - Pericarditis [None]

NARRATIVE: CASE EVENT DATE: 20160803
